FAERS Safety Report 6903581 (Version 10)
Quarter: 2018Q2

REPORT INFORMATION
  Report Type: Spontaneous
  Country: US (occurrence: US)
  Receive Date: 20090206
  Receipt Date: 20180613
  Transmission Date: 20180711
  Serious: Yes (Life-Threatening, Hospitalization, Other)
  Sender: FDA-Public Use
  Company Number: US-ELI_LILLY_AND_COMPANY-US200901005624

PATIENT
  Age: 59 Year
  Sex: Female

DRUGS (8)
  1. HUMULIN R [Suspect]
     Active Substance: INSULIN HUMAN
     Indication: TYPE 1 DIABETES MELLITUS
     Dosage: 16 U, PRN
     Route: 058
  2. HUMALOG [Suspect]
     Active Substance: INSULIN LISPRO
     Indication: TYPE 1 DIABETES MELLITUS
     Dosage: UNK, UNKNOWN
     Route: 058
  3. HUMULIN R [Suspect]
     Active Substance: INSULIN HUMAN
     Indication: PRODUCT USED FOR UNKNOWN INDICATION
     Dosage: UNK, UNKNOWN
     Route: 065
  4. METOPROLOL. [Concomitant]
     Active Substance: METOPROLOL
     Indication: PRODUCT USED FOR UNKNOWN INDICATION
  5. HUMULIN N [Suspect]
     Active Substance: INSULIN HUMAN
     Indication: TYPE 1 DIABETES MELLITUS
     Dosage: 18 U, EACH EVENING
     Route: 058
  6. ASPIRIN                            /00002701/ [Concomitant]
     Active Substance: ASPIRIN
     Indication: PRODUCT USED FOR UNKNOWN INDICATION
  7. PLAVIX [Concomitant]
     Active Substance: CLOPIDOGREL BISULFATE
     Indication: PRODUCT USED FOR UNKNOWN INDICATION
  8. HUMULIN 70/30 [Suspect]
     Active Substance: INSULIN HUMAN
     Indication: TYPE 1 DIABETES MELLITUS
     Dosage: UNK, UNKNOWN
     Route: 058

REACTIONS (42)
  - Abdominal discomfort [Unknown]
  - Drug ineffective [Unknown]
  - Blood glucose increased [Unknown]
  - Blood glucose increased [Not Recovered/Not Resolved]
  - Skin ulcer [Unknown]
  - Macular degeneration [Not Recovered/Not Resolved]
  - Visual field defect [Not Recovered/Not Resolved]
  - Scar [Not Recovered/Not Resolved]
  - Blood glucose decreased [Unknown]
  - Localised infection [Recovering/Resolving]
  - Cardiac failure congestive [Recovered/Resolved]
  - Venous occlusion [Recovered/Resolved]
  - Myocardial infarction [Recovered/Resolved]
  - Cardiac failure congestive [Not Recovered/Not Resolved]
  - Lower limb fracture [Recovering/Resolving]
  - Arthritis [Not Recovered/Not Resolved]
  - Eye haemorrhage [Not Recovered/Not Resolved]
  - Dyspnoea [Unknown]
  - Blood glucose decreased [Recovered/Resolved]
  - Incorrect drug administration duration [Unknown]
  - Hypoaesthesia [Unknown]
  - Cerebrovascular accident [Unknown]
  - Blood glucose increased [Recovered/Resolved]
  - Drug hypersensitivity [Recovered/Resolved]
  - Gait inability [Not Recovered/Not Resolved]
  - Visual impairment [Not Recovered/Not Resolved]
  - Cataract [Unknown]
  - Pain in extremity [Not Recovered/Not Resolved]
  - Weight fluctuation [Unknown]
  - Blood glucose abnormal [Unknown]
  - Myocardial infarction [Unknown]
  - Blindness [Not Recovered/Not Resolved]
  - Hyperhidrosis [Recovered/Resolved]
  - Insomnia [Unknown]
  - Gangrene [Unknown]
  - Localised infection [Unknown]
  - Haemorrhage [Unknown]
  - Procedural complication [Unknown]
  - Dizziness [Recovered/Resolved]
  - Accident [Recovered/Resolved]
  - Gait disturbance [Recovered/Resolved]
  - Stress [Unknown]

NARRATIVE: CASE EVENT DATE: 2007
